FAERS Safety Report 10615766 (Version 3)
Quarter: 2021Q3

REPORT INFORMATION
  Report Type: Report from Study
  Country: CA (occurrence: CA)
  Receive Date: 20141201
  Receipt Date: 20210927
  Transmission Date: 20211014
  Serious: Yes (Other)
  Sender: FDA-Public Use
  Company Number: CA-JNJFOC-20141110468

PATIENT
  Age: 19 Year
  Sex: Female
  Weight: 45.4 kg

DRUGS (3)
  1. STELARA [Suspect]
     Active Substance: USTEKINUMAB
     Indication: PSORIASIS
     Dosage: RECEIVED DOSE AT WEEK 0, 4 16 + 28. (4TH DOSE)
     Route: 058
     Dates: start: 20140325, end: 202012
  2. MIDOL [Concomitant]
     Active Substance: IBUPROFEN
     Indication: DYSMENORRHOEA
     Route: 065
  3. STELARA [Suspect]
     Active Substance: USTEKINUMAB
     Route: 058

REACTIONS (7)
  - Pallor [Recovered/Resolved]
  - Rhinitis [Recovering/Resolving]
  - Lip dry [Recovered/Resolved]
  - Loss of consciousness [Recovered/Resolved]
  - Inadequate diet [Unknown]
  - Infection [Recovering/Resolving]
  - Dark circles under eyes [Recovered/Resolved]

NARRATIVE: CASE EVENT DATE: 20141116
